FAERS Safety Report 19076480 (Version 1)
Quarter: 2021Q1

REPORT INFORMATION
  Report Type: Spontaneous
  Country: US (occurrence: US)
  Receive Date: 20210331
  Receipt Date: 20210331
  Transmission Date: 20210420
  Serious: No
  Sender: FDA-Public Use
  Company Number: US-SA-2021SA104714

PATIENT
  Age: 23 Year
  Sex: Female

DRUGS (4)
  1. DUPIXENT [Suspect]
     Active Substance: DUPILUMAB
     Indication: DERMATITIS
     Dosage: 300 MG, QOW
     Route: 058
  2. BETAMETHASONE DIPROPIONATE. [Concomitant]
     Active Substance: BETAMETHASONE DIPROPIONATE
  3. NEXPLANON [Concomitant]
     Active Substance: ETONOGESTREL
  4. PIMECROLIMUS. [Concomitant]
     Active Substance: PIMECROLIMUS

REACTIONS (1)
  - Dermatitis [Unknown]
